FAERS Safety Report 6616652-1 (Version None)
Quarter: 2010Q1

REPORT INFORMATION
  Report Type: 
  Country: None (occurrence: None)
  Receive Date: 20100223
  Receipt Date: 20091119
  Transmission Date: 20100710
  Serious: No
  Sender: FDA-Public Use
  Company Number: 8052299

PATIENT
  Sex: Female
  Weight: 71.7 kg

DRUGS (6)
  1. CERTOLIZUMAB PEGOL (UCB, INC) [Suspect]
     Indication: CROHN'S DISEASE
     Dosage: 400 MG, MONTHLY DOSE FREQ.: ONCE MONTHLY SUBCUTANEOUS
     Route: 058
     Dates: start: 20090109
  2. PREDNISONE [Concomitant]
  3. ZINC [Concomitant]
  4. VITAMIN TAB [Concomitant]
  5. CALCIUM W/VITAMIN D [Concomitant]
  6. ZITHROMAX [Concomitant]

REACTIONS (6)
  - ALOPECIA [None]
  - BRONCHITIS [None]
  - CROHN'S DISEASE [None]
  - FATIGUE [None]
  - PREGNANCY [None]
  - VOMITING IN PREGNANCY [None]
